FAERS Safety Report 5033876-8 (Version None)
Quarter: 2006Q2

REPORT INFORMATION
  Report Type: 
  Country: None (occurrence: None)
  Receive Date: 20060621
  Receipt Date: 20060530
  Transmission Date: 20061013
  Serious: Yes (Hospitalization, Disabling)
  Sender: FDA-Public Use
  Company Number: US200605006831

PATIENT
  Age: 52 Year
  Sex: Male
  Weight: 65.8 kg

DRUGS (3)
  1. ZYPREXA [Suspect]
     Indication: INSOMNIA
     Dosage: 10 MG, DAILY (1/D), ORAL
     Route: 048
     Dates: start: 20020101, end: 20060101
  2. OXYCONTIN [Concomitant]
  3. EXCEDRIN /USA/(ACETYLSALICYLIC ACID, CAFFEINE, PARACETAMOL) [Concomitant]

REACTIONS (16)
  - ABASIA [None]
  - BLOOD GLUCOSE INCREASED [None]
  - DIABETIC COMA [None]
  - FEELING JITTERY [None]
  - HAND DEFORMITY [None]
  - HUMERUS FRACTURE [None]
  - IMMUNODEFICIENCY [None]
  - IMPAIRED WORK ABILITY [None]
  - INSOMNIA [None]
  - PHARMACEUTICAL PRODUCT COMPLAINT [None]
  - POLYDIPSIA [None]
  - RASH MACULAR [None]
  - ROAD TRAFFIC ACCIDENT [None]
  - SKIN DISORDER [None]
  - VOMITING [None]
  - WEIGHT DECREASED [None]
